FAERS Safety Report 17572180 (Version 1)
Quarter: 2020Q1

REPORT INFORMATION
  Report Type: Spontaneous
  Country: DE (occurrence: DE)
  Receive Date: 20200323
  Receipt Date: 20200323
  Transmission Date: 20200409
  Serious: Yes (Other)
  Sender: FDA-Public Use
  Company Number: DE-MYLANLABS-2020M1029039

PATIENT
  Age: 18 Year
  Sex: Female

DRUGS (6)
  1. ETOPOSIDE. [Suspect]
     Active Substance: ETOPOSIDE
     Indication: GENE MUTATION
     Dosage: FIRST CYCLE ON DAY 1 AND DAY 3 (50% REDUCED DOSE OF THE ICE REGIMEN)
     Route: 065
     Dates: start: 201101
  2. CARBOPLATIN. [Suspect]
     Active Substance: CARBOPLATIN
     Indication: ALVEOLAR RHABDOMYOSARCOMA
     Dosage: SECOND CYCLE ON DAY 1 AND DAY 3 (25% REDUCED DOSE OF THE ICE REGIMEN)
     Route: 065
     Dates: start: 201102
  3. HOLOXAN [Suspect]
     Active Substance: IFOSFAMIDE
     Indication: ALVEOLAR RHABDOMYOSARCOMA
     Dosage: DOSE: 1.5G/M2; FIRST CYCLE ON DAY 1 AND DAY 3 (50% REDUCED DOSE OF THE ICE REGIMEN)
     Route: 065
     Dates: start: 201101
  4. ETOPOSIDE. [Suspect]
     Active Substance: ETOPOSIDE
     Indication: ALVEOLAR RHABDOMYOSARCOMA
     Dosage: SECOND CYCLE ON DAY 1 AND DAY 3 (25% REDUCED DOSE OF THE ICE REGIMEN)
     Route: 065
     Dates: start: 201102
  5. CARBOPLATIN. [Suspect]
     Active Substance: CARBOPLATIN
     Indication: GENE MUTATION
     Dosage: FIRST CYCLE ON DAY 1 AND DAY 3 (50% REDUCED DOSE OF THE ICE REGIMEN)
     Route: 065
     Dates: start: 201101
  6. HOLOXAN [Suspect]
     Active Substance: IFOSFAMIDE
     Indication: GENE MUTATION
     Dosage: SECOND CYCLE ON DAY 1 AND DAY 3 (25% REDUCED DOSE OF THE ICE REGIMEN)
     Route: 065
     Dates: start: 201102

REACTIONS (1)
  - Erythema [Recovering/Resolving]
